FAERS Safety Report 16579491 (Version 2)
Quarter: 2019Q3

REPORT INFORMATION
  Report Type: Spontaneous
  Country: US (occurrence: US)
  Receive Date: 20190716
  Receipt Date: 20190725
  Transmission Date: 20191004
  Serious: Yes (Other)
  Sender: FDA-Public Use
  Company Number: US-PFIZER INC-2019300574

PATIENT
  Sex: Male
  Weight: 131.5 kg

DRUGS (1)
  1. LYRICA [Suspect]
     Active Substance: PREGABALIN
     Indication: NEUROPATHY PERIPHERAL
     Dosage: 300 MG, 3X/DAY(300MG THREE TIMES A DAY BY MOUTH  )
     Route: 048

REACTIONS (3)
  - Ankle fracture [Unknown]
  - Osteoporosis [Unknown]
  - Overdose [Not Recovered/Not Resolved]
